FAERS Safety Report 19728750 (Version 1)
Quarter: 2021Q3

REPORT INFORMATION
  Report Type: Spontaneous
  Country: US (occurrence: US)
  Receive Date: 20210820
  Receipt Date: 20210820
  Transmission Date: 20211014
  Serious: Yes (Other)
  Sender: FDA-Public Use
  Company Number: US-JNJFOC-20210822770

PATIENT
  Age: 4 Year

DRUGS (1)
  1. NEUTROGENA BEACH DEF WATER PLUS SUN PROT BR^D SPECT SPF 70 (AV\HOM\OCTI\OCTO\OX) [Suspect]
     Active Substance: AVOBENZONE\HOMOSALATE\OCTISALATE\OCTOCRYLENE\OXYBENZONE
     Indication: PRODUCT USED FOR UNKNOWN INDICATION
     Dosage: USED IT EXACTLY AS DESCRIBED ON THE INSTRUCTIONS
     Route: 061
     Dates: start: 2021

REACTIONS (2)
  - Drug ineffective [Unknown]
  - Burns third degree [Unknown]

NARRATIVE: CASE EVENT DATE: 2021
